FAERS Safety Report 10148747 (Version 1)
Quarter: 2014Q2

REPORT INFORMATION
  Report Type: Spontaneous
  Country: US (occurrence: US)
  Receive Date: 20140502
  Receipt Date: 20140502
  Transmission Date: 20141212
  Serious: Yes (Death, Other)
  Sender: FDA-Public Use
  Company Number: 2014SP002287

PATIENT
  Age: 73 Year
  Sex: Female

DRUGS (3)
  1. GEMCITABINE [Suspect]
     Indication: CHOLANGIOCARCINOMA
  2. CAPECITABINE [Suspect]
     Indication: CHOLANGIOCARCINOMA
  3. BEVACIZUMAB [Suspect]
     Indication: CHOLANGIOCARCINOMA

REACTIONS (10)
  - Haemolytic uraemic syndrome [Unknown]
  - Proteinuria [Unknown]
  - Blood creatinine increased [Unknown]
  - Red blood cell schistocytes present [Unknown]
  - Haemolysis [Unknown]
  - Thrombotic microangiopathy [Unknown]
  - Platelet count abnormal [Unknown]
  - Anaemia [Unknown]
  - Oedema peripheral [Unknown]
  - Dyspnoea [Unknown]
